FAERS Safety Report 9492856 (Version 2)
Quarter: 2014Q2

REPORT INFORMATION
  Report Type: Report from Study
  Country: CA (occurrence: CA)
  Receive Date: 20130831
  Receipt Date: 20140411
  Transmission Date: 20141212
  Serious: Yes (Other)
  Sender: FDA-Public Use
  Company Number: CA-UCBSA-096128

PATIENT
  Age: 59 Year
  Sex: Female
  Weight: 77.1 kg

DRUGS (12)
  1. CIMZIA [Suspect]
     Indication: RHEUMATOID ARTHRITIS
     Dosage: 3 INTAKES
     Route: 058
     Dates: start: 20120713, end: 20120814
  2. CIMZIA [Suspect]
     Indication: RHEUMATOID ARTHRITIS
     Route: 058
     Dates: start: 20120826
  3. PLAQUENIL [Concomitant]
     Indication: RHEUMATOID ARTHRITIS
     Route: 048
  4. SULCRATE [Concomitant]
     Indication: GASTROOESOPHAGEAL REFLUX DISEASE
     Route: 048
  5. MEFENAMIC [Concomitant]
     Indication: HEADACHE
     Dosage: PRN
     Route: 048
  6. LYRICA [Concomitant]
     Indication: PAIN
     Route: 048
  7. NEXIUM [Concomitant]
     Indication: GASTROOESOPHAGEAL REFLUX DISEASE
     Route: 048
  8. DITROPAN [Concomitant]
     Route: 048
  9. CITALOPRAM [Concomitant]
     Route: 048
  10. DOMPERIDONE [Concomitant]
     Dosage: 1TABLET
     Route: 048
  11. RELLVIA SR [Concomitant]
     Route: 048
  12. VOLTAREN [Concomitant]
     Dosage: DOSE PER INTAKE : 150MG IN MORNING AND 75 MG IN EVENING
     Route: 048

REACTIONS (2)
  - Pneumonia [Recovering/Resolving]
  - Lung infection [Unknown]
